FAERS Safety Report 9148391 (Version 2)
Quarter: 2014Q1

REPORT INFORMATION
  Report Type: Spontaneous
  Country: US (occurrence: US)
  Receive Date: 20130308
  Receipt Date: 20140219
  Transmission Date: 20141002
  Serious: Yes (Other)
  Sender: FDA-Public Use
  Company Number: US-ACCORD-016707

PATIENT
  Age: 61 Year
  Sex: Female

DRUGS (2)
  1. PACLITAXEL/PACLITAXEL LIPOSOME [Suspect]
     Indication: BREAST CANCER METASTATIC
  2. BEVACIZUMAB [Concomitant]
     Indication: BREAST CANCER METASTATIC

REACTIONS (1)
  - Cystoid macular oedema [Recovering/Resolving]
